FAERS Safety Report 6055757-3 (Version None)
Quarter: 2009Q1

REPORT INFORMATION
  Report Type: 
  Country: None (occurrence: None)
  Receive Date: 20090128
  Receipt Date: 20090116
  Transmission Date: 20090719
  Serious: Yes (Other)
  Sender: FDA-Public Use
  Company Number: US-SANOFI-SYNTHELABO-A03200900271

PATIENT
  Sex: Female

DRUGS (1)
  1. PHISOHEX [Suspect]
     Dosage: UNK
     Route: 061

REACTIONS (1)
  - BREAST CANCER [None]
